FAERS Safety Report 5225645-0 (Version None)
Quarter: 2007Q1

REPORT INFORMATION
  Report Type: 
  Country: None (occurrence: None)
  Receive Date: 20061201
  Receipt Date: 20061018
  Transmission Date: 20070707
  Serious: Yes (Hospitalization)
  Sender: FDA-Public Use
  Company Number: US200610004186

PATIENT
  Age: 35 Year
  Sex: Female

DRUGS (1)
  1. CYMBALTA [Suspect]
     Indication: INTERVERTEBRAL DISC PROTRUSION
     Dosage: 60 MG,
     Dates: start: 20061004, end: 20061018

REACTIONS (1)
  - HYPERSENSITIVITY [None]
